FAERS Safety Report 20276582 (Version 2)
Quarter: 2022Q1

REPORT INFORMATION
  Report Type: Spontaneous
  Country: US (occurrence: None)
  Receive Date: 20220102
  Receipt Date: 20220128
  Transmission Date: 20220423
  Serious: No
  Sender: FDA-Public Use
  Company Number: 2021A864239

PATIENT
  Sex: Female
  Weight: 73.9 kg

DRUGS (1)
  1. BUDESONIDE\FORMOTEROL\GLYCOPYRRONIUM [Suspect]
     Active Substance: BUDESONIDE\FORMOTEROL\GLYCOPYRRONIUM
     Indication: Chronic obstructive pulmonary disease
     Dosage: 120 ACTUATIONS INHALER, 2 PUFFS, TWICE DAILY
     Route: 055
     Dates: start: 20211117

REACTIONS (6)
  - Oxygen saturation decreased [Not Recovered/Not Resolved]
  - Gait disturbance [Unknown]
  - Chronic obstructive pulmonary disease [Unknown]
  - Device issue [Unknown]
  - Product dose omission issue [Unknown]
  - Wrong technique in device usage process [Unknown]
